FAERS Safety Report 14544222 (Version 1)
Quarter: 2018Q1

REPORT INFORMATION
  Report Type: Spontaneous
  Country: US (occurrence: US)
  Receive Date: 20180215
  Receipt Date: 20180215
  Transmission Date: 20180509
  Serious: Yes (Other)
  Sender: FDA-Public Use
  Company Number: None

PATIENT
  Age: 60 Year
  Sex: Female

DRUGS (1)
  1. REMICADE [Suspect]
     Active Substance: INFLIXIMAB
     Indication: SARCOIDOSIS
     Dosage: FREQUENCY - EVERY 8 WEEKS
     Route: 042
     Dates: start: 20180208, end: 20180209

REACTIONS (4)
  - Hypertension [None]
  - Pyrexia [None]
  - Heart rate increased [None]
  - Arthralgia [None]

NARRATIVE: CASE EVENT DATE: 20180208
